FAERS Safety Report 8112693-6 (Version None)
Quarter: 2012Q1

REPORT INFORMATION
  Report Type: 
  Country: None (occurrence: None)
  Receive Date: 20120203
  Receipt Date: 20120120
  Transmission Date: 20120608
  Serious: Yes (Other)
  Sender: FDA-Public Use
  Company Number: NO-ROCHE-1032684

PATIENT
  Age: 37 Year
  Sex: Male

DRUGS (1)
  1. ISOTRETINOIN [Suspect]
     Indication: PRODUCT USED FOR UNKNOWN INDICATION
     Dates: start: 20090101

REACTIONS (9)
  - SPUTUM RETENTION [None]
  - MUCOSAL DRYNESS [None]
  - DRY MOUTH [None]
  - ABDOMINAL DISCOMFORT [None]
  - NASAL CONGESTION [None]
  - DRY EYE [None]
  - BRONCHOSPASM [None]
  - HEADACHE [None]
  - SECRETION DISCHARGE [None]
